FAERS Safety Report 9098804 (Version 2)
Quarter: 2013Q1

REPORT INFORMATION
  Report Type: Report from Study
  Country: RS (occurrence: RS)
  Receive Date: 20130213
  Receipt Date: 20130228
  Transmission Date: 20140127
  Serious: Yes (Other)
  Sender: FDA-Public Use
  Company Number: RS-009507513-1302SRB003754

PATIENT
  Age: 66 Year
  Sex: Male

DRUGS (3)
  1. BOCEPREVIR [Suspect]
     Indication: HEPATITIS C
     Dosage: 800 MG, TID (3X 800MG)
     Route: 048
     Dates: start: 20120925, end: 20130208
  2. PEGASYS [Suspect]
     Dosage: UNK
     Dates: start: 20120828, end: 201301
  3. RIBAVIRIN [Suspect]
     Dosage: UNK
     Route: 048
     Dates: start: 20120828, end: 20130208

REACTIONS (4)
  - Ascites [Recovering/Resolving]
  - Neutropenia [Recovering/Resolving]
  - Oedema peripheral [Recovering/Resolving]
  - Thrombocytopenia [Recovering/Resolving]
